FAERS Safety Report 7076687-4 (Version None)
Quarter: 2010Q4

REPORT INFORMATION
  Report Type: 
  Country: None (occurrence: None)
  Receive Date: 20101101
  Receipt Date: 20101027
  Transmission Date: 20110411
  Serious: No
  Sender: FDA-Public Use
  Company Number: US-PFIZER INC-2010137591

PATIENT
  Sex: Female

DRUGS (3)
  1. XANAX XR [Suspect]
     Indication: PANIC ATTACK
     Dosage: 3 MG, 1X/DAY
  2. XANAX [Suspect]
     Indication: PANIC ATTACK
     Dosage: 2 MG, 3X/DAY
  3. ATIVAN [Suspect]
     Dosage: 4 TABLETS

REACTIONS (1)
  - PANIC ATTACK [None]
